FAERS Safety Report 9025926 (Version 3)
Quarter: 2013Q2

REPORT INFORMATION
  Report Type: Report from Study
  Country: JP (occurrence: JP)
  Receive Date: 20130122
  Receipt Date: 20130412
  Transmission Date: 20140414
  Serious: Yes (Death, Life-Threatening)
  Sender: FDA-Public Use
  Company Number: JP-ROCHE-1181211

PATIENT
  Age: 78 Year
  Sex: Male

DRUGS (8)
  1. METHOXY POLYETHYLENE GLYCOL-EPOETIN BETA [Suspect]
     Indication: NEPHROGENIC ANAEMIA
     Route: 058
     Dates: start: 20111214, end: 20120628
  2. AMLODIN [Concomitant]
     Indication: HYPERTENSION
     Route: 048
     Dates: end: 20120601
  3. TAMSULOSIN HYDROCHLORIDE [Concomitant]
     Indication: BENIGN PROSTATIC HYPERPLASIA
     Route: 048
     Dates: end: 20120601
  4. BAYASPIRIN [Concomitant]
     Route: 048
     Dates: end: 20120601
  5. LASIX [Concomitant]
     Indication: DIABETIC NEPHROPATHY
     Route: 048
     Dates: end: 20120601
  6. ALLOPURINOL [Concomitant]
     Indication: HYPERTENSION
     Route: 048
     Dates: end: 20120601
  7. EVIPROSTAT (JAPAN) [Concomitant]
     Indication: BENIGN PROSTATIC HYPERPLASIA
     Route: 048
     Dates: end: 20120601
  8. ASPARA K [Concomitant]
     Route: 048
     Dates: end: 20120601

REACTIONS (3)
  - Cerebrovascular disorder [Fatal]
  - Peritoneal neoplasm [Not Recovered/Not Resolved]
  - Hypertension [Recovered/Resolved]
